FAERS Safety Report 8969846 (Version 2)
Quarter: 2013Q1

REPORT INFORMATION
  Report Type: Spontaneous
  Country: BE (occurrence: BE)
  Receive Date: 20121217
  Receipt Date: 20130109
  Transmission Date: 20140127
  Serious: Yes (Hospitalization)
  Sender: FDA-Public Use
  Company Number: BE-B.I. PHARMACEUTICALS,INC./RIDGEFIELD-2012-BL-00627BL

PATIENT
  Age: 83 Year
  Sex: Female
  Weight: 75 kg

DRUGS (4)
  1. PRADAXA [Suspect]
     Indication: ATRIAL FIBRILLATION
     Dosage: 220 MG
     Route: 048
     Dates: start: 20120511, end: 20120905
  2. EMCONCOR [Concomitant]
     Dosage: 5 MG
  3. ZESTRIL [Concomitant]
     Dosage: 10 MG
  4. LORMETAZEPAM [Concomitant]
     Dosage: 1 MG

REACTIONS (3)
  - Decreased appetite [Recovered/Resolved]
  - Depression [Recovered/Resolved]
  - Confusional state [Recovered/Resolved]
